FAERS Safety Report 6244384-0 (Version None)
Quarter: 2009Q2

REPORT INFORMATION
  Report Type: 
  Country: None (occurrence: None)
  Receive Date: 20090625
  Receipt Date: 20090622
  Transmission Date: 20091009
  Serious: Yes (Death)
  Sender: FDA-Public Use
  Company Number: PHHY2009BR24933

PATIENT
  Sex: Female

DRUGS (1)
  1. EXELON [Suspect]
     Indication: MENTAL DISORDER

REACTIONS (1)
  - DEATH [None]
